FAERS Safety Report 5974221-0 (Version None)
Quarter: 2008Q4

REPORT INFORMATION
  Report Type: 
  Country: None (occurrence: None)
  Receive Date: 20081128
  Receipt Date: 20081114
  Transmission Date: 20090506
  Serious: Yes (Hospitalization)
  Sender: FDA-Public Use
  Company Number: 1000001574

PATIENT
  Age: 66 Year
  Sex: Female

DRUGS (6)
  1. ESCITALOPRAM [Suspect]
     Dosage: 20 MG (20 MG,1 IN 1 D), ORAL
     Route: 048
     Dates: end: 20080414
  2. TEGRETOL [Suspect]
     Indication: EPILEPSY
     Dosage: 1200 MG (400 MG, 3 IN 1 D), ORAL
     Route: 048
  3. INIPOMP (TABLETS) [Suspect]
     Dosage: 20 MG (20 MG,1 IN 1 D), ORAL
     Route: 048
  4. NISISCO (TABLETS) [Suspect]
     Dosage: 1 DOSAGE FORMS (1 DOSAGE FORMS, 1 IN D), ORAL
     Route: 048
  5. CARBAMAZEPINE [Suspect]
     Indication: EPILEPSY
     Dosage: 1200 MG (400 MG, 3 IN 1 D), ORAL
     Route: 048
  6. ACTONEL (TABLETS) [Concomitant]

REACTIONS (4)
  - APHASIA [None]
  - CONVULSION [None]
  - HYPONATRAEMIA [None]
  - TREMOR [None]
